FAERS Safety Report 7535973-1 (Version None)
Quarter: 2011Q2

REPORT INFORMATION
  Report Type: 
  Country: None (occurrence: None)
  Receive Date: 20110602
  Receipt Date: 20110518
  Transmission Date: 20111010
  Serious: Yes (Other)
  Sender: FDA-Public Use
  Company Number: 2009S1006018

PATIENT
  Age: 67 Year
  Sex: Female

DRUGS (12)
  1. ENALAPRIL MALEATE [Concomitant]
  2. MULTI-VITAMIN [Concomitant]
  3. SYNTHROID [Concomitant]
  4. TEMAZEPAM [Concomitant]
  5. METFORMIN HCL [Concomitant]
  6. NOVOLOG [Concomitant]
  7. PRAVACHOL [Concomitant]
  8. PHOSPHOSODA FLAVOR NOT SPECIFIED [Suspect]
     Indication: COLONOSCOPY
     Dosage: 90 ML, TOTAL; PO
     Route: 048
     Dates: start: 20080610, end: 20080610
  9. LANTUS [Concomitant]
  10. FOSAMAX [Concomitant]
  11. CHLOORDIAZEPOXIDE [Concomitant]
  12. ALPRAZOLAM [Concomitant]

REACTIONS (7)
  - DECREASED APPETITE [None]
  - NEPHROPTOSIS [None]
  - ANAEMIA [None]
  - RENAL FAILURE ACUTE [None]
  - RENAL TUBULAR NECROSIS [None]
  - RENAL FAILURE CHRONIC [None]
  - FATIGUE [None]
